FAERS Safety Report 8608888-5 (Version None)
Quarter: 2012Q3

REPORT INFORMATION
  Report Type: 
  Country: None (occurrence: None)
  Receive Date: 20120821
  Receipt Date: 19950516
  Transmission Date: 20120928
  Serious: Yes (Other)
  Sender: FDA-Public Use
  Company Number: US-ROCHE-1100862

PATIENT
  Age: 49 Year
  Sex: Male

DRUGS (8)
  1. LOPRESSOR [Concomitant]
     Route: 048
  2. ACTIVASE [Suspect]
     Indication: ACUTE MYOCARDIAL INFARCTION
  3. HEPARIN [Concomitant]
     Route: 042
  4. TIMENTIN [Concomitant]
     Route: 042
  5. LIBRIUM [Concomitant]
     Route: 048
  6. LANOXIN [Concomitant]
     Route: 048
  7. ZANTAC [Concomitant]
  8. NITROGLYCERIN [Concomitant]

REACTIONS (6)
  - VASCULAR RESISTANCE SYSTEMIC DECREASED [None]
  - PNEUMONIA ASPIRATION [None]
  - CHEST DISCOMFORT [None]
  - RESPIRATORY FAILURE [None]
  - CARDIAC OUTPUT INCREASED [None]
  - SEPSIS [None]
